FAERS Safety Report 6900092-1 (Version None)
Quarter: 2010Q3

REPORT INFORMATION
  Report Type: 
  Country: None (occurrence: None)
  Receive Date: 20100708
  Receipt Date: 20100426
  Transmission Date: 20110219
  Serious: Yes (Other)
  Sender: FDA-Public Use
  Company Number: 2010037937

PATIENT
  Age: 67 Year
  Sex: Male
  Weight: 95.2 kg

DRUGS (3)
  1. CHANTIX [Suspect]
     Indication: SMOKING CESSATION THERAPY
     Dosage: 0.5 MG, 1X/DAY, ORAL
     Route: 048
     Dates: start: 20090101, end: 20100322
  2. SPIRIVA [Concomitant]
  3. LIPITOR [Concomitant]

REACTIONS (4)
  - AGITATION [None]
  - ANXIETY [None]
  - FEAR [None]
  - TONGUE INJURY [None]
